FAERS Safety Report 6409604-8 (Version None)
Quarter: 2009Q4

REPORT INFORMATION
  Report Type: 
  Country: None (occurrence: None)
  Receive Date: 20091022
  Receipt Date: 20091014
  Transmission Date: 20100525
  Serious: No
  Sender: FDA-Public Use
  Company Number: US-B.I. PHARMACEUTICALS,INC./RIDGEFIELD-2009-BP-11990BP

PATIENT
  Age: 67 Year
  Sex: Female

DRUGS (1)
  1. MICARDIS HCT [Suspect]
     Indication: HYPERTENSION
     Route: 048
     Dates: start: 20091013

REACTIONS (4)
  - ACTIVITIES OF DAILY LIVING IMPAIRED [None]
  - DIZZINESS [None]
  - FATIGUE [None]
  - HEADACHE [None]
